FAERS Safety Report 19745933 (Version 1)
Quarter: 2021Q3

REPORT INFORMATION
  Report Type: Spontaneous
  Country: US (occurrence: US)
  Receive Date: 20210824
  Receipt Date: 20210824
  Transmission Date: 20211014
  Serious: Yes (Other)
  Sender: FDA-Public Use
  Company Number: None

PATIENT
  Age: 55 Year
  Sex: Female
  Weight: 76.5 kg

DRUGS (4)
  1. MYRBETRIQ [Suspect]
     Active Substance: MIRABEGRON
  2. EXTRA D [Concomitant]
  3. ESTRADIOL. [Concomitant]
     Active Substance: ESTRADIOL
  4. WOMEN^S DAILY VITAMIN [Concomitant]

REACTIONS (1)
  - Visual impairment [None]

NARRATIVE: CASE EVENT DATE: 20191101
